FAERS Safety Report 20387148 (Version 2)
Quarter: 2022Q1

REPORT INFORMATION
  Report Type: Report from Study
  Country: PR (occurrence: PR)
  Receive Date: 20220127
  Receipt Date: 20220213
  Transmission Date: 20220424
  Serious: Yes (Death, Hospitalization)
  Sender: FDA-Public Use
  Company Number: PR-ABBVIE-22K-131-4251599-00

PATIENT
  Age: 80 Year
  Sex: Female
  Weight: 65.376 kg

DRUGS (1)
  1. VENCLEXTA [Suspect]
     Active Substance: VENETOCLAX
     Indication: Acute myeloid leukaemia
     Route: 048
     Dates: start: 20220111, end: 202201

REACTIONS (2)
  - Hypophagia [Fatal]
  - Gait disturbance [Fatal]
